FAERS Safety Report 11481611 (Version 2)
Quarter: 2015Q3

REPORT INFORMATION
  Report Type: Spontaneous
  Country: JP (occurrence: JP)
  Receive Date: 20150909
  Receipt Date: 20150916
  Transmission Date: 20151125
  Serious: Yes (Hospitalization)
  Sender: FDA-Public Use
  Company Number: JP-BAXTER-2015BAX049609

PATIENT
  Sex: Female

DRUGS (2)
  1. DIANEAL [Suspect]
     Active Substance: CALCIUM CHLORIDE\DEXTROSE\MAGNESIUM CHLORIDE\SODIUM CHLORIDE\SODIUM LACTATE
     Indication: GLOMERULONEPHRITIS CHRONIC
     Route: 033
     Dates: start: 20150202
  2. DIANEAL [Suspect]
     Active Substance: CALCIUM CHLORIDE\DEXTROSE\MAGNESIUM CHLORIDE\SODIUM CHLORIDE\SODIUM LACTATE
     Indication: GLOMERULONEPHRITIS CHRONIC
     Route: 033
     Dates: start: 20150202

REACTIONS (2)
  - Lower limb fracture [Recovering/Resolving]
  - Open fracture [Recovering/Resolving]

NARRATIVE: CASE EVENT DATE: 20150807
